FAERS Safety Report 6344755-8 (Version None)
Quarter: 2009Q3

REPORT INFORMATION
  Report Type: 
  Country: None (occurrence: None)
  Receive Date: 20090904
  Receipt Date: 20090817
  Transmission Date: 20100115
  Serious: Yes (Hospitalization)
  Sender: FDA-Public Use
  Company Number: 2009AL000703

PATIENT
  Age: 77 Year
  Sex: Female

DRUGS (25)
  1. DIGOXIN [Suspect]
     Indication: HEART RATE IRREGULAR
     Dosage: 0.25 MG, DAILY, PO
     Route: 048
  2. THEOPHYLLINE [Concomitant]
  3. MORPHINE [Concomitant]
  4. LEVOTHYROXINE SODIUM [Concomitant]
  5. COREG [Concomitant]
  6. PLAVIX [Concomitant]
  7. VYTORIN [Concomitant]
  8. LOWAZA [Concomitant]
  9. POTASSIUM CHLORIDE [Concomitant]
  10. ALPRAZOLAM [Concomitant]
  11. METHASONE [Concomitant]
  12. OYST-CAL/D [Concomitant]
  13. HYDROXYZ HCL [Concomitant]
  14. THEO-24 [Concomitant]
  15. ALBUTEROL [Concomitant]
  16. OYSTER [Concomitant]
  17. SHELL TAB [Concomitant]
  18. ZOLPIDEM [Concomitant]
  19. ISOSORBIDE [Concomitant]
  20. CARVEDILOL [Concomitant]
  21. METHYLPRED [Concomitant]
  22. ADVAIR HFA [Concomitant]
  23. PROMETH/COD [Concomitant]
  24. LANTUS [Concomitant]
  25. HUMALOG [Concomitant]

REACTIONS (10)
  - ANXIETY [None]
  - CARDIOACTIVE DRUG LEVEL INCREASED [None]
  - CHEST PAIN [None]
  - DYSPNOEA [None]
  - ECONOMIC PROBLEM [None]
  - HYPERHIDROSIS [None]
  - ILL-DEFINED DISORDER [None]
  - MULTIPLE INJURIES [None]
  - PAIN [None]
  - THERAPEUTIC AGENT TOXICITY [None]
